FAERS Safety Report 6819419-4 (Version None)
Quarter: 2010Q3

REPORT INFORMATION
  Report Type: 
  Country: None (occurrence: None)
  Receive Date: 20100707
  Receipt Date: 20100625
  Transmission Date: 20110219
  Serious: Yes (Other)
  Sender: FDA-Public Use
  Company Number: CA-PFIZER INC-2010079672

PATIENT
  Age: 28 Year
  Sex: Female

DRUGS (2)
  1. CHAMPIX [Suspect]
     Dosage: UNK
     Dates: start: 20100501
  2. CHAMPIX [Suspect]
     Dosage: 1 MG, UNK

REACTIONS (2)
  - HEART RATE INCREASED [None]
  - NERVOUSNESS [None]
